FAERS Safety Report 8168375-8 (Version None)
Quarter: 2012Q1

REPORT INFORMATION
  Report Type: 
  Country: None (occurrence: None)
  Receive Date: 20120227
  Receipt Date: 20120220
  Transmission Date: 20120608
  Serious: Yes (Hospitalization, Other)
  Sender: FDA-Public Use
  Company Number: US-MERCK-1108USA03567

PATIENT
  Age: 50 Year
  Sex: Female
  Weight: 62 kg

DRUGS (3)
  1. FOSAMAX [Suspect]
     Route: 048
     Dates: start: 20080101, end: 20090801
  2. FOSAMAX [Suspect]
     Indication: OSTEOPOROSIS
     Route: 048
     Dates: start: 20080101, end: 20090801
  3. FOSAMAX [Suspect]
     Indication: OSTEOPENIA
     Route: 048
     Dates: start: 19990101, end: 20091201

REACTIONS (39)
  - FALLOPIAN TUBE DISORDER [None]
  - BRONCHITIS [None]
  - URTICARIA [None]
  - MYOSITIS [None]
  - RADIUS FRACTURE [None]
  - UTERINE DISORDER [None]
  - CONTUSION [None]
  - INTERVERTEBRAL DISC PROTRUSION [None]
  - ARTHROPATHY [None]
  - IMPAIRED HEALING [None]
  - TENDONITIS [None]
  - RADICULITIS LUMBOSACRAL [None]
  - LIMB ASYMMETRY [None]
  - FALL [None]
  - SINUS DISORDER [None]
  - LOW TURNOVER OSTEOPATHY [None]
  - RIB FRACTURE [None]
  - ARTHRALGIA [None]
  - OSTEOARTHRITIS [None]
  - GASTROOESOPHAGEAL REFLUX DISEASE [None]
  - FEMUR FRACTURE [None]
  - PATELLA FRACTURE [None]
  - MUSCLE STRAIN [None]
  - ILIOTIBIAL BAND SYNDROME [None]
  - RESTLESS LEGS SYNDROME [None]
  - DRUG INEFFECTIVE [None]
  - SYNOVIAL CYST [None]
  - ARTHRITIS [None]
  - BURSITIS [None]
  - PARAESTHESIA [None]
  - MYOFASCIAL PAIN SYNDROME [None]
  - MUSCULOSKELETAL DISORDER [None]
  - FRUSTRATION [None]
  - ORAL DISORDER [None]
  - INTERVERTEBRAL DISC DEGENERATION [None]
  - PAIN [None]
  - TREATMENT FAILURE [None]
  - FRACTURE NONUNION [None]
  - JOINT EFFUSION [None]
